FAERS Safety Report 15546777 (Version 1)
Quarter: 2018Q4

REPORT INFORMATION
  Report Type: Spontaneous
  Country: US (occurrence: US)
  Receive Date: 20181018
  Receipt Date: 20181018
  Transmission Date: 20190205
  Serious: No
  Sender: FDA-Public Use
  Company Number: None

PATIENT
  Age: 47 Year
  Sex: Female

DRUGS (1)
  1. GENVOYA [Suspect]
     Active Substance: COBICISTAT\ELVITEGRAVIR\EMTRICITABINE\TENOFOVIR ALAFENAMIDE FUMARATE
     Dates: start: 20171021, end: 20180606

REACTIONS (4)
  - Therapy cessation [None]
  - Sluggishness [None]
  - Weight increased [None]
  - Blood cholesterol increased [None]

NARRATIVE: CASE EVENT DATE: 20180606
